FAERS Safety Report 19278213 (Version 1)
Quarter: 2021Q2

REPORT INFORMATION
  Report Type: Spontaneous
  Country: US (occurrence: US)
  Receive Date: 20210519
  Receipt Date: 20210519
  Transmission Date: 20210717
  Serious: Yes (Life-Threatening, Hospitalization)
  Sender: FDA-Public Use
  Company Number: None

PATIENT
  Age: 47 Year
  Sex: Female
  Weight: 63.45 kg

DRUGS (2)
  1. NP THYROID [Suspect]
     Active Substance: LEVOTHYROXINE\LIOTHYRONINE
     Indication: HYPOTHYROIDISM
     Dosage: ?          QUANTITY:1 TABLET(S);?
     Route: 048
  2. SYNTHROID [Concomitant]
     Active Substance: LEVOTHYROXINE SODIUM

REACTIONS (10)
  - Weight increased [None]
  - Feeling abnormal [None]
  - Dry skin [None]
  - Recalled product administered [None]
  - Product measured potency issue [None]
  - Dyspnoea [None]
  - Aphasia [None]
  - Goitre [None]
  - Fatigue [None]
  - Choking [None]

NARRATIVE: CASE EVENT DATE: 20210422
